FAERS Safety Report 11858331 (Version 1)
Quarter: 2015Q4

REPORT INFORMATION
  Report Type: Spontaneous
  Country: FR (occurrence: FR)
  Receive Date: 20151222
  Receipt Date: 20151222
  Transmission Date: 20160305
  Serious: Yes (Hospitalization, Other)
  Sender: FDA-Public Use
  Company Number: FR-BRISTOL-MYERS SQUIBB COMPANY-10619344

PATIENT
  Age: 0 Year
  Sex: Female
  Weight: 3.47 kg

DRUGS (9)
  1. COMBIVIR [Suspect]
     Active Substance: LAMIVUDINE\ZIDOVUDINE
     Indication: PRODUCT USED FOR UNKNOWN INDICATION
     Dosage: UNK
     Route: 064
  2. NORVIR [Suspect]
     Active Substance: RITONAVIR
     Indication: PRODUCT USED FOR UNKNOWN INDICATION
     Dosage: UNK
     Route: 064
  3. ZERIT [Suspect]
     Active Substance: STAVUDINE
     Indication: PRODUCT USED FOR UNKNOWN INDICATION
     Dosage: UNK
     Route: 064
  4. SUSTIVA [Suspect]
     Active Substance: EFAVIRENZ
     Indication: PRODUCT USED FOR UNKNOWN INDICATION
     Dosage: UNK
     Route: 064
  5. VIRAMUNE [Suspect]
     Active Substance: NEVIRAPINE
     Indication: PRODUCT USED FOR UNKNOWN INDICATION
     Dosage: UNK
     Route: 064
  6. ZERIT [Suspect]
     Active Substance: STAVUDINE
     Indication: PROPHYLAXIS
     Dosage: UNK
     Route: 048
  7. VIDEX [Suspect]
     Active Substance: DIDANOSINE
     Indication: PROPHYLAXIS
     Dosage: UNK
     Route: 048
     Dates: start: 2000, end: 2000
  8. CRIXIVAN [Suspect]
     Active Substance: INDINAVIR SULFATE
     Indication: PRODUCT USED FOR UNKNOWN INDICATION
     Dosage: UNK
     Route: 064
  9. VIDEX [Suspect]
     Active Substance: DIDANOSINE
     Indication: PRODUCT USED FOR UNKNOWN INDICATION
     Dosage: UNK
     Route: 064

REACTIONS (11)
  - Blood lactate dehydrogenase increased [Unknown]
  - Pyelonephritis [Unknown]
  - Gastrointestinal disorder [Recovered/Resolved]
  - Microcytosis [Unknown]
  - Livedo reticularis [Recovered/Resolved]
  - Electroencephalogram abnormal [Unknown]
  - Aspartate aminotransferase increased [Unknown]
  - Foetal exposure during pregnancy [Unknown]
  - Blood creatine phosphokinase increased [Unknown]
  - Neutropenia [Unknown]
  - Hypertriglyceridaemia [Unknown]

NARRATIVE: CASE EVENT DATE: 2000
